FAERS Safety Report 12503459 (Version 1)
Quarter: 2016Q2

REPORT INFORMATION
  Report Type: Spontaneous
  Country: US (occurrence: US)
  Receive Date: 20160628
  Receipt Date: 20160628
  Transmission Date: 20160815
  Serious: No
  Sender: FDA-Public Use
  Company Number: US-PFIZER INC-2016312436

PATIENT
  Age: 40 Year
  Sex: Female

DRUGS (3)
  1. AMITRIPTYLINE [Suspect]
     Active Substance: AMITRIPTYLINE
     Dosage: 25 MG, 1X/DAY (HS)
  2. TECFIDERA [Suspect]
     Active Substance: DIMETHYL FUMARATE
     Dosage: UNK
     Dates: start: 201511
  3. LYRICA [Suspect]
     Active Substance: PREGABALIN
     Dosage: 25 MG, 3X/DAY

REACTIONS (10)
  - Decreased vibratory sense [Unknown]
  - Poor quality sleep [Unknown]
  - Vision blurred [Unknown]
  - Memory impairment [Not Recovered/Not Resolved]
  - Flushing [Recovering/Resolving]
  - Urinary incontinence [Unknown]
  - Pain in extremity [Not Recovered/Not Resolved]
  - Stress [Not Recovered/Not Resolved]
  - Muscle spasticity [Unknown]
  - Fatigue [Unknown]
